FAERS Safety Report 4306067-3 (Version None)
Quarter: 2004Q1

REPORT INFORMATION
  Report Type: 
  Country: None (occurrence: None)
  Receive Date: 20040225
  Receipt Date: 20021216
  Transmission Date: 20041129
  Serious: No
  Sender: FDA-Public Use
  Company Number: US-BRISTOL-MYERS SQUIBB COMPANY-12174967

PATIENT
  Sex: Female

DRUGS (1)
  1. EXCEDRIN TABS [Suspect]
     Indication: NASOPHARYNGITIS
     Dates: start: 20021215

REACTIONS (1)
  - URTICARIA [None]
